FAERS Safety Report 9557624 (Version 1)
Quarter: 2013Q3

REPORT INFORMATION
  Report Type: Spontaneous
  Country: GR (occurrence: GR)
  Receive Date: 20130926
  Receipt Date: 20130926
  Transmission Date: 20140515
  Serious: Yes (Hospitalization, Other)
  Sender: FDA-Public Use
  Company Number: GR-GLAXOSMITHKLINE-B0923134A

PATIENT
  Age: 11 Month
  Sex: Male

DRUGS (1)
  1. RANITIDINE [Suspect]
     Indication: OESOPHAGITIS
     Route: 065

REACTIONS (5)
  - Thrombocytopenia [Recovered/Resolved]
  - Bronchiolitis [Recovered/Resolved]
  - Respiratory distress [Unknown]
  - Tachypnoea [Unknown]
  - Rash [Unknown]
